FAERS Safety Report 11892674 (Version 3)
Quarter: 2016Q1

REPORT INFORMATION
  Report Type: Spontaneous
  Country: BR (occurrence: BR)
  Receive Date: 20160106
  Receipt Date: 20160316
  Transmission Date: 20160526
  Serious: Yes (Other)
  Sender: FDA-Public Use
  Company Number: BR-GLAXOSMITHKLINE-BR2016GSK001181

PATIENT
  Age: 3 Year
  Sex: Male
  Weight: 23 kg

DRUGS (2)
  1. AVAMYS [Concomitant]
     Active Substance: FLUTICASONE FUROATE
     Indication: RHINITIS PROPHYLAXIS
     Dosage: 1 PUFF(S), BID
  2. SERETIDE [Suspect]
     Active Substance: FLUTICASONE FUROATE\SALMETEROL XINAFOATE
     Indication: ASTHMA PROPHYLAXIS
     Dosage: 2 PUFF(S), BID
     Dates: start: 20151215, end: 201512

REACTIONS (4)
  - Productive cough [Recovered/Resolved]
  - Treatment noncompliance [Unknown]
  - Wheezing [Recovered/Resolved]
  - Apnoea [Recovered/Resolved]

NARRATIVE: CASE EVENT DATE: 20151215
